FAERS Safety Report 8178986-1 (Version None)
Quarter: 2012Q1

REPORT INFORMATION
  Report Type: 
  Country: None (occurrence: None)
  Receive Date: 20120302
  Receipt Date: 20120227
  Transmission Date: 20120608
  Serious: No
  Sender: FDA-Public Use
  Company Number: US-BIOGENIDEC-2012BI007265

PATIENT
  Sex: Female

DRUGS (5)
  1. TYSABRI [Suspect]
     Indication: MULTIPLE SCLEROSIS
     Route: 042
     Dates: start: 20050214
  2. AVONEX [Concomitant]
     Route: 030
     Dates: start: 20070101
  3. TYSABRI [Suspect]
     Route: 042
     Dates: start: 20070427, end: 20070626
  4. AVONEX [Concomitant]
     Indication: MULTIPLE SCLEROSIS
     Route: 030
     Dates: start: 20010101
  5. TYSABRI [Suspect]
     Route: 042
     Dates: start: 20111109, end: 20120111

REACTIONS (2)
  - FEELING ABNORMAL [None]
  - DRUG SPECIFIC ANTIBODY PRESENT [None]
